FAERS Safety Report 5486983-X (Version None)
Quarter: 2007Q4

REPORT INFORMATION
  Report Type: 
  Country: None (occurrence: None)
  Receive Date: 20071012
  Receipt Date: 20071012
  Transmission Date: 20080405
  Serious: No
  Sender: FDA-Public Use
  Company Number: None

PATIENT
  Age: 25 Year
  Sex: Male
  Weight: 113.3993 kg

DRUGS (3)
  1. DAYQUIL/NYQUIL OVER THE COUNTER STRENGTH NAME BRAND [Suspect]
     Indication: NASAL CONGESTION
  2. NYQUIL OVER THE COUNTER NAME BRAND STRENGTH [Suspect]
     Indication: NASAL CONGESTION
  3. TYLENOL EXTRA STRENGTH NAME BRAND [Suspect]
     Indication: PAIN IN EXTREMITY

REACTIONS (2)
  - ANXIETY [None]
  - INCREASED APPETITE [None]
